FAERS Safety Report 7687334-2 (Version None)
Quarter: 2011Q3

REPORT INFORMATION
  Report Type: 
  Country: None (occurrence: None)
  Receive Date: 20110816
  Receipt Date: 20110810
  Transmission Date: 20111222
  Serious: Yes (Hospitalization, Other)
  Sender: FDA-Public Use
  Company Number: IL-ABBOTT-11P-135-0838628-00

PATIENT
  Sex: Male
  Weight: 73 kg

DRUGS (9)
  1. KALETRA [Suspect]
     Indication: HIV INFECTION
     Route: 048
     Dates: start: 20101201
  2. FOLIC ACID [Concomitant]
     Indication: PRODUCT USED FOR UNKNOWN INDICATION
  3. COMBIVIR [Concomitant]
     Indication: HIV INFECTION
     Dates: start: 20101201
  4. NOVOLOG [Concomitant]
     Indication: DIABETES MELLITUS
     Dates: start: 20100827
  5. LIPITOR [Concomitant]
     Indication: HYPERLIPIDAEMIA
     Dates: start: 20100308
  6. MICROPIRIN [Concomitant]
     Indication: DIABETES MELLITUS
     Dates: start: 20050317
  7. RAMIPRIL [Concomitant]
     Indication: HYPERTENSION
     Dates: start: 20100322
  8. VIREAD [Concomitant]
     Indication: HIV INFECTION
     Dates: start: 20101201
  9. ISENTRESS [Concomitant]
     Indication: HIV INFECTION
     Dates: start: 20101201

REACTIONS (17)
  - RIGHT VENTRICULAR FAILURE [None]
  - ATRIOVENTRICULAR DISSOCIATION [None]
  - INTERNATIONAL NORMALISED RATIO INCREASED [None]
  - ACQUIRED IMMUNODEFICIENCY SYNDROME [None]
  - BRADYCARDIA [None]
  - HEPATIC CIRRHOSIS [None]
  - LUNG INFILTRATION [None]
  - PANCYTOPENIA [None]
  - HYPOALBUMINAEMIA [None]
  - ATRIOVENTRICULAR BLOCK SECOND DEGREE [None]
  - ABDOMINAL DISTENSION [None]
  - ASCITES [None]
  - HYPOTHYROIDISM [None]
  - HYPONATRAEMIA [None]
  - VENTRICULAR TACHYCARDIA [None]
  - PAIN [None]
  - INGUINAL HERNIA [None]
